FAERS Safety Report 9367634 (Version 1)
Quarter: 2013Q2

REPORT INFORMATION
  Report Type: Spontaneous
  Country: US (occurrence: US)
  Receive Date: 20130625
  Receipt Date: 20130625
  Transmission Date: 20140414
  Serious: No
  Sender: FDA-Public Use
  Company Number: US-ASTELLAS-2012US006532

PATIENT
  Age: 72 Year
  Sex: Female
  Weight: 123 kg

DRUGS (2)
  1. VESICARE [Suspect]
     Indication: HYPERTONIC BLADDER
     Dosage: 10 MG, UID/QD
     Route: 048
     Dates: start: 20120501
  2. SYNTHROID [Concomitant]
     Indication: THYROID CANCER
     Dosage: 1 DF, UID/QD
     Route: 048

REACTIONS (2)
  - Pain [Recovered/Resolved]
  - Constipation [Recovered/Resolved]
